FAERS Safety Report 18344683 (Version 1)
Quarter: 2020Q4

REPORT INFORMATION
  Report Type: Spontaneous
  Country: AU (occurrence: AU)
  Receive Date: 20201005
  Receipt Date: 20201005
  Transmission Date: 20210114
  Serious: Yes (Other)
  Sender: FDA-Public Use
  Company Number: AU-PFIZER INC-2020381109

PATIENT
  Sex: Female

DRUGS (9)
  1. TRANYLCYPROMINE [Interacting]
     Active Substance: TRANYLCYPROMINE
     Dosage: 10 MG, DAILY (MORNING)
     Route: 048
  2. TRIFLUOPERAZINE [Interacting]
     Active Substance: TRIFLUOPERAZINE HYDROCHLORIDE
     Dosage: 5 MG, DAILY (MORNING)
     Route: 048
  3. MORPHINE SULFATE. [Suspect]
     Active Substance: MORPHINE SULFATE
     Dosage: 6 MG
     Route: 042
  4. TRIFLUOPERAZINE [Interacting]
     Active Substance: TRIFLUOPERAZINE HYDROCHLORIDE
     Indication: MAJOR DEPRESSION
     Dosage: 20 MG, DAILY
  5. PROMETHAZINE [Concomitant]
     Active Substance: PROMETHAZINE HYDROCHLORIDE
     Dosage: 50 MG (1 1/2 HOURS BEFORE THE TRAIL)
     Route: 030
  6. MORPHINE SULFATE. [Interacting]
     Active Substance: MORPHINE SULFATE
     Dosage: 1.0 MG
     Route: 042
  7. TRANYLCYPROMINE [Interacting]
     Active Substance: TRANYLCYPROMINE
     Indication: MAJOR DEPRESSION
     Dosage: 40 MG, DAILY
  8. MORPHINE SULFATE. [Interacting]
     Active Substance: MORPHINE SULFATE
     Dosage: 2.5 MG
     Route: 042
  9. MORPHINE SULFATE. [Interacting]
     Active Substance: MORPHINE SULFATE
     Dosage: 2.5 MG
     Route: 042

REACTIONS (5)
  - Drug interaction [Recovered/Resolved]
  - Hypotension [Recovered/Resolved]
  - Miosis [Recovered/Resolved]
  - Unresponsive to stimuli [Recovered/Resolved]
  - Loss of consciousness [Recovered/Resolved]
